FAERS Safety Report 19432442 (Version 1)
Quarter: 2021Q2

REPORT INFORMATION
  Report Type: Spontaneous
  Country: US (occurrence: US)
  Receive Date: 20210617
  Receipt Date: 20210617
  Transmission Date: 20210717
  Serious: No
  Sender: FDA-Public Use
  Company Number: US-SA-2021SA196647

PATIENT
  Age: 81 Year
  Sex: Female

DRUGS (3)
  1. COVID?19 VACCINE [Concomitant]
     Indication: COVID-19 IMMUNISATION
  2. DUPIXENT [Suspect]
     Active Substance: DUPILUMAB
     Indication: NASAL POLYPS
  3. DUPIXENT [Suspect]
     Active Substance: DUPILUMAB
     Indication: ASTHMA
     Dosage: DRUG STRUCTURE DOSAGE : 300 MG DRUG INTERVAL DOSAGE : EVERY 2 WEEKS DRUG TREATMENT DURATION: NEW
     Route: 065
     Dates: start: 2020

REACTIONS (2)
  - Product dose omission issue [Unknown]
  - Arthritis [Unknown]
